FAERS Safety Report 24970122 (Version 1)
Quarter: 2025Q1

REPORT INFORMATION
  Report Type: Spontaneous
  Country: GB (occurrence: GB)
  Receive Date: 20250214
  Receipt Date: 20250214
  Transmission Date: 20250408
  Serious: Yes (Disabling)
  Sender: RANBAXY
  Company Number: GB-MHRA-TPP23739561C25127830YC1738235250140

PATIENT
  Age: 78 Year
  Sex: Male
  Weight: 82 kg

DRUGS (22)
  1. TAMSULOSIN [Suspect]
     Active Substance: TAMSULOSIN
     Indication: Ill-defined disorder
     Route: 065
     Dates: start: 20250130
  2. TAMSULOSIN [Concomitant]
     Active Substance: TAMSULOSIN
     Indication: Ill-defined disorder
     Route: 065
     Dates: start: 20241031, end: 20241107
  3. FINASTERIDE [Concomitant]
     Active Substance: FINASTERIDE
     Indication: Ill-defined disorder
     Route: 065
     Dates: start: 20241230
  4. FUROSEMIDE [Concomitant]
     Active Substance: FUROSEMIDE
     Indication: Ill-defined disorder
     Route: 065
     Dates: start: 20230817, end: 20241226
  5. AMOXICILLIN [Concomitant]
     Active Substance: AMOXICILLIN
     Indication: Ill-defined disorder
     Route: 065
     Dates: start: 20241217, end: 20241222
  6. FENBID [Concomitant]
     Indication: Ill-defined disorder
     Route: 065
     Dates: start: 20250130
  7. POLYETHYLENE GLYCOL 3350\POTASSIUM CHLORIDE\SODIUM BICARBONATE\SODIUM [Concomitant]
     Active Substance: POLYETHYLENE GLYCOL 3350\POTASSIUM CHLORIDE\SODIUM BICARBONATE\SODIUM CHLORIDE
     Indication: Ill-defined disorder
     Route: 065
     Dates: start: 20250130
  8. MOMETASONE [Concomitant]
     Active Substance: MOMETASONE
     Indication: Ill-defined disorder
     Route: 065
     Dates: start: 20250130
  9. AMITRIPTYLINE [Concomitant]
     Active Substance: AMITRIPTYLINE
     Indication: Ill-defined disorder
     Route: 065
     Dates: start: 20230817
  10. ATORVASTATIN [Concomitant]
     Active Substance: ATORVASTATIN
     Indication: Ill-defined disorder
     Route: 065
     Dates: start: 20230817
  11. ATROVENT [Concomitant]
     Active Substance: IPRATROPIUM BROMIDE
     Indication: Ill-defined disorder
     Route: 065
     Dates: start: 20230817
  12. BISOPROLOL [Concomitant]
     Active Substance: BISOPROLOL
     Indication: Ill-defined disorder
     Route: 065
     Dates: start: 20230817
  13. FAMOTIDINE [Concomitant]
     Active Substance: FAMOTIDINE
     Indication: Ill-defined disorder
     Route: 065
     Dates: start: 20230817
  14. FLUPENTIXOL [Concomitant]
     Active Substance: FLUPENTIXOL
     Indication: Ill-defined disorder
     Route: 065
     Dates: start: 20230817
  15. GABAPENTIN [Concomitant]
     Active Substance: GABAPENTIN
     Indication: Ill-defined disorder
     Route: 065
     Dates: start: 20230817
  16. POTASSIUM BICARBONATE\SODIUM ALGINATE [Concomitant]
     Active Substance: POTASSIUM BICARBONATE\SODIUM ALGINATE
     Indication: Ill-defined disorder
     Route: 065
     Dates: start: 20230817
  17. GLYCERYL [Concomitant]
     Indication: Ill-defined disorder
     Route: 065
     Dates: start: 20230817
  18. MEBEVERINE [Concomitant]
     Active Substance: MEBEVERINE
     Indication: Ill-defined disorder
     Route: 065
     Dates: start: 20230817
  19. ACETAMINOPHEN [Concomitant]
     Active Substance: ACETAMINOPHEN
     Indication: Ill-defined disorder
     Route: 065
     Dates: start: 20230817
  20. QUININE [Concomitant]
     Active Substance: QUININE
     Indication: Ill-defined disorder
     Route: 065
     Dates: start: 20230817
  21. SENNA [Concomitant]
     Active Substance: SENNOSIDES
     Indication: Ill-defined disorder
     Route: 065
     Dates: start: 20230817
  22. DULOXETINE [Concomitant]
     Active Substance: DULOXETINE
     Indication: Ill-defined disorder
     Route: 065
     Dates: start: 20240403

REACTIONS (1)
  - Dizziness postural [Recovered/Resolved]

NARRATIVE: CASE EVENT DATE: 20250130
